FAERS Safety Report 8257899-0 (Version None)
Quarter: 2012Q2

REPORT INFORMATION
  Report Type: 
  Country: None (occurrence: None)
  Receive Date: 20120404
  Receipt Date: 20120329
  Transmission Date: 20120825
  Serious: No
  Sender: FDA-Public Use
  Company Number: US-PFIZER INC-2012081221

PATIENT
  Sex: Male
  Weight: 93.878 kg

DRUGS (4)
  1. FLECTOR [Suspect]
     Indication: ARTHRALGIA
     Dosage: UNK, AS NEEDED
     Route: 061
     Dates: start: 20120327, end: 20120328
  2. SUBOXONE [Concomitant]
     Indication: DRUG WITHDRAWAL SYNDROME
     Dosage: UNK
  3. AMLODIPINE [Concomitant]
     Indication: HYPERTENSION
     Dosage: UNK
  4. WELLBUTRIN [Concomitant]
     Indication: DEPRESSION
     Dosage: 150 MG, UNK

REACTIONS (11)
  - NAUSEA [None]
  - AGITATION [None]
  - CHEST PAIN [None]
  - NERVOUSNESS [None]
  - PALPITATIONS [None]
  - CONFUSIONAL STATE [None]
  - ANXIETY [None]
  - HEART RATE INCREASED [None]
  - HEADACHE [None]
  - DIZZINESS [None]
  - MALAISE [None]
